FAERS Safety Report 20489435 (Version 1)
Quarter: 2022Q1

REPORT INFORMATION
  Report Type: Spontaneous
  Country: US (occurrence: US)
  Receive Date: 20220218
  Receipt Date: 20220218
  Transmission Date: 20220423
  Serious: No
  Sender: FDA-Public Use
  Company Number: US-009507513-2201USA008230

PATIENT
  Sex: Male

DRUGS (3)
  1. PROVENTIL [Suspect]
     Active Substance: ALBUTEROL
     Dosage: 1-2 PUFFS (90- 180 MCG) BY INHALATION ROUTE EVERY 6 HOURS AS NEEDED FOR 14 DAYS; INHALATION HFA AERO
     Route: 055
     Dates: start: 20161020, end: 20161021
  2. ROBAXIN [Concomitant]
     Active Substance: METHOCARBAMOL
     Dosage: 1 TABLET BY ORAL ROUTE 4 TIMES A DAY AS NEEDED
     Route: 048
     Dates: start: 20160706
  3. ROBAXIN [Concomitant]
     Active Substance: METHOCARBAMOL
     Dosage: 1 TABLET BY ORAL ROUTE DAILY AS NEEDED
     Route: 048
     Dates: start: 20160818, end: 20161111

REACTIONS (1)
  - Drug intolerance [Unknown]

NARRATIVE: CASE EVENT DATE: 20161001
